FAERS Safety Report 5959388-2 (Version None)
Quarter: 2008Q4

REPORT INFORMATION
  Report Type: 
  Country: None (occurrence: None)
  Receive Date: 20081119
  Receipt Date: 20081119
  Transmission Date: 20090506
  Serious: Yes (Life-Threatening)
  Sender: FDA-Public Use
  Company Number: None

PATIENT
  Age: 56 Year
  Sex: Female
  Weight: 77 kg

DRUGS (9)
  1. LEVOFLOXACIN [Suspect]
     Indication: PNEUMONIA
     Dosage: 750MG IV X 1
     Route: 042
     Dates: start: 20080707
  2. LISINOPRIL [Concomitant]
  3. DILAUDID [Concomitant]
  4. TOPROL-XL [Concomitant]
  5. DILANTIN [Concomitant]
  6. SULINDAC [Concomitant]
  7. COREG [Concomitant]
  8. ZOLOFT [Concomitant]
  9. NITROGLYCERIN [Concomitant]

REACTIONS (1)
  - ELECTROCARDIOGRAM QT PROLONGED [None]
